FAERS Safety Report 6636112-1 (Version None)
Quarter: 2010Q1

REPORT INFORMATION
  Report Type: 
  Country: None (occurrence: None)
  Receive Date: 20100311
  Receipt Date: 20100301
  Transmission Date: 20100710
  Serious: Yes (Hospitalization, Other)
  Sender: FDA-Public Use
  Company Number: OPIR20100008

PATIENT
  Age: 56 Year
  Sex: Female

DRUGS (1)
  1. OPANA [Suspect]
     Indication: DRUG USE FOR UNKNOWN INDICATION
     Dosage: INTRA-NASAL
     Route: 045

REACTIONS (5)
  - DRUG ABUSE [None]
  - INTENTIONAL DRUG MISUSE [None]
  - RENAL FAILURE [None]
  - RHABDOMYOLYSIS [None]
  - WRONG TECHNIQUE IN DRUG USAGE PROCESS [None]
